FAERS Safety Report 8982224 (Version 1)
Quarter: 2012Q4

REPORT INFORMATION
  Report Type: 
  Country: US (occurrence: US)
  Receive Date: 20121222
  Receipt Date: 20121222
  Transmission Date: 20130627
  Serious: No
  Sender: FDA-Public Use
  Company Number: US-ASTRAZENECA-2012SE89416

PATIENT
  Age: 80 Year
  Sex: Male
  Weight: 53.1 kg

DRUGS (1)
  1. ENTOCORT EC [Suspect]
     Indication: CROHN^S DISEASE
     Dosage: EVERY MORNING THREE TIMES
     Route: 048
     Dates: start: 20121106

REACTIONS (1)
  - Gingival swelling [Unknown]
